FAERS Safety Report 7126731-0 (Version None)
Quarter: 2010Q4

REPORT INFORMATION
  Report Type: 
  Country: None (occurrence: None)
  Receive Date: 20101129
  Receipt Date: 20101118
  Transmission Date: 20110411
  Serious: Yes (Other)
  Sender: FDA-Public Use
  Company Number: NL-PFIZER INC-2010142035

PATIENT
  Age: 74 Year
  Sex: Male

DRUGS (1)
  1. DETRUSITOL [Suspect]
     Dosage: UNK
     Dates: end: 20101101

REACTIONS (3)
  - ANURIA [None]
  - BLADDER PAIN [None]
  - PROSTATIC OPERATION [None]
